FAERS Safety Report 5069240-5 (Version None)
Quarter: 2006Q3

REPORT INFORMATION
  Report Type: 
  Country: None (occurrence: None)
  Receive Date: 20060731
  Receipt Date: 20060718
  Transmission Date: 20061208
  Serious: Yes (Other)
  Sender: FDA-Public Use
  Company Number: 2006088737

PATIENT
  Age: 64 Year
  Sex: Male
  Weight: 82.5547 kg

DRUGS (3)
  1. ZOLOFT [Suspect]
     Dosage: 50 MG (50 MG, 1 IN 1D
  2. TOPAMAX [Concomitant]
  3. DEPAKOTE [Concomitant]

REACTIONS (7)
  - EYE DISORDER [None]
  - INFLAMMATION [None]
  - LIVER FUNCTION TEST ABNORMAL [None]
  - LOCAL SWELLING [None]
  - MUSCLE SPASMS [None]
  - PARAESTHESIA [None]
  - SWELLING FACE [None]
